FAERS Safety Report 6015512-7 (Version None)
Quarter: 2008Q4

REPORT INFORMATION
  Report Type: 
  Country: None (occurrence: None)
  Receive Date: 20081222
  Receipt Date: 20081215
  Transmission Date: 20090506
  Serious: Yes (Other)
  Sender: FDA-Public Use
  Company Number: CH-PFIZER INC-2008153937

PATIENT

DRUGS (2)
  1. ARTHROTEC [Suspect]
     Indication: ARTHRALGIA
     Route: 048
     Dates: start: 20081012, end: 20081012
  2. METHOTREXATE [Concomitant]
     Indication: ARTHRITIS
     Dosage: 20 MG, WEEKLY
     Route: 058

REACTIONS (3)
  - CIRCULATORY COLLAPSE [None]
  - DIZZINESS [None]
  - RASH MACULO-PAPULAR [None]
